FAERS Safety Report 24794705 (Version 1)
Quarter: 2024Q4

REPORT INFORMATION
  Report Type: Spontaneous
  Country: FR (occurrence: FR)
  Receive Date: 20241231
  Receipt Date: 20241231
  Transmission Date: 20250114
  Serious: Yes (Hospitalization)
  Sender: IDORSIA PHARMACEUTICALS
  Company Number: None

PATIENT
  Age: 29 Year
  Sex: Female

DRUGS (1)
  1. QUVIVIQ [Suspect]
     Active Substance: DARIDOREXANT
     Indication: Insomnia
     Dosage: UNK
     Route: 048
     Dates: start: 20241128

REACTIONS (1)
  - Intracranial pressure increased [Recovered/Resolved]

NARRATIVE: CASE EVENT DATE: 20241203
